FAERS Safety Report 7866160-5 (Version None)
Quarter: 2011Q4

REPORT INFORMATION
  Report Type: 
  Country: None (occurrence: None)
  Receive Date: 20111028
  Receipt Date: 20110503
  Transmission Date: 20120403
  Serious: No
  Sender: FDA-Public Use
  Company Number: US-GLAXOSMITHKLINE-A0925569A

PATIENT
  Age: 60 Year
  Sex: Male

DRUGS (12)
  1. ADVAIR DISKUS 100/50 [Suspect]
     Indication: CHRONIC OBSTRUCTIVE PULMONARY DISEASE
     Dosage: 1PUFF TWICE PER DAY
     Route: 055
     Dates: start: 20080501
  2. ASPIRIN [Concomitant]
  3. LOSARTAN POTASSIUM [Concomitant]
  4. VERAMYST [Concomitant]
  5. PROPRANOLOL [Concomitant]
  6. SIMVASTATIN [Concomitant]
  7. LEVOTHYROXINE SODIUM [Concomitant]
  8. PRILOSEC [Concomitant]
  9. PROCARDIA [Concomitant]
  10. ALPRAZOLAM [Concomitant]
  11. GLYBURIDE [Concomitant]
  12. FUROSEMIDE [Concomitant]

REACTIONS (3)
  - DRUG INEFFECTIVE [None]
  - RESPIRATION ABNORMAL [None]
  - PRODUCT QUALITY ISSUE [None]
